FAERS Safety Report 26185952 (Version 1)
Quarter: 2025Q4

REPORT INFORMATION
  Report Type: Spontaneous
  Country: US (occurrence: US)
  Receive Date: 20251222
  Receipt Date: 20251222
  Transmission Date: 20260118
  Serious: No
  Sender: LEO PHARM
  Company Number: US-LEO Pharma-385113

PATIENT
  Age: 76 Year
  Sex: Female

DRUGS (1)
  1. ANZUPGO [Suspect]
     Active Substance: DELGOCITINIB
     Indication: Dermatitis atopic
     Dosage: APPLY A THIN LAYER; TREATMENT IS ONGOING
     Route: 003

REACTIONS (2)
  - Application site hypoaesthesia [Unknown]
  - Product use in unapproved indication [Unknown]
